FAERS Safety Report 12118078 (Version 1)
Quarter: 2016Q1

REPORT INFORMATION
  Report Type: Spontaneous
  Country: FR (occurrence: FR)
  Receive Date: 20160226
  Receipt Date: 20160226
  Transmission Date: 20160526
  Serious: Yes (Hospitalization)
  Sender: FDA-Public Use
  Company Number: FR-ACCORD-038216

PATIENT
  Age: 65 Year
  Sex: Female

DRUGS (4)
  1. FLUOROURACIL ACCORD [Suspect]
     Active Substance: FLUOROURACIL
     Indication: INVASIVE DUCTAL BREAST CARCINOMA
     Dosage: 900 MG IN A SINGLE DOSE
     Route: 042
     Dates: start: 20151216, end: 20151216
  2. EPIRUBICINE MEDAC [Suspect]
     Active Substance: EPIRUBICIN HYDROCHLORIDE
     Indication: INVASIVE DUCTAL BREAST CARCINOMA
     Dosage: 160 MG IN A SINGLE DOSE
     Route: 042
     Dates: start: 20151216, end: 20151216
  3. ENDOXAN [Suspect]
     Active Substance: CYCLOPHOSPHAMIDE
     Indication: INVASIVE DUCTAL BREAST CARCINOMA
     Dosage: 900 MG IN A SINGLE DOSE
     Route: 042
     Dates: start: 20151216, end: 20151216
  4. NEULASTA [Concomitant]
     Active Substance: PEGFILGRASTIM

REACTIONS (3)
  - Febrile neutropenia [Recovered/Resolved]
  - Lymphoedema [Unknown]
  - Thrombocytopenia [Recovered/Resolved]

NARRATIVE: CASE EVENT DATE: 20151223
